FAERS Safety Report 8320273-2 (Version None)
Quarter: 2012Q2

REPORT INFORMATION
  Report Type: 
  Country: None (occurrence: None)
  Receive Date: 20120426
  Receipt Date: 20120426
  Transmission Date: 20120825
  Serious: Yes (Other)
  Sender: FDA-Public Use
  Company Number: None

PATIENT
  Sex: Male
  Weight: 71.6683 kg

DRUGS (2)
  1. RIBAVIRIN [Suspect]
     Dosage: 400MG TWICE A DAY ORAL
     Route: 048
     Dates: start: 20120327, end: 20120423
  2. PEGASYS [Suspect]
     Dosage: 180MCG ONCE A WEEK SUBCUTANEOUS
     Route: 058
     Dates: start: 20120327, end: 20120423

REACTIONS (6)
  - CONVULSION [None]
  - HALLUCINATION [None]
  - CONFUSIONAL STATE [None]
  - HYPOAESTHESIA [None]
  - TREMOR [None]
  - UNRESPONSIVE TO STIMULI [None]
